FAERS Safety Report 12635472 (Version 5)
Quarter: 2018Q4

REPORT INFORMATION
  Report Type: Report from Study
  Country: JP (occurrence: JP)
  Receive Date: 20160809
  Receipt Date: 20181227
  Transmission Date: 20190204
  Serious: Yes (Other)
  Sender: FDA-Public Use
  Company Number: JP-INCYTE CORPORATION-2016IN004743

PATIENT

DRUGS (2)
  1. JAKAVI [Suspect]
     Active Substance: RUXOLITINIB
     Dosage: 5 MG, BID
     Route: 048
     Dates: start: 20180322
  2. JAKAVI [Suspect]
     Active Substance: RUXOLITINIB
     Indication: PRIMARY MYELOFIBROSIS
     Dosage: 7 MG, QD (10 MG, 3 DAYS A WEEK AND 5 MG, 4 DAYS A WEEK)
     Route: 048
     Dates: start: 20151125

REACTIONS (7)
  - Primary myelofibrosis [Not Recovered/Not Resolved]
  - Platelet count increased [Unknown]
  - Platelet count decreased [Recovering/Resolving]
  - White blood cell count increased [Unknown]
  - Red blood cell count decreased [Unknown]
  - Bone marrow failure [Recovered/Resolved]
  - Bone marrow failure [Recovering/Resolving]

NARRATIVE: CASE EVENT DATE: 20160106
